FAERS Safety Report 8486051 (Version 2)
Quarter: 2015Q2

REPORT INFORMATION
  Report Type: Spontaneous
  Country: US (occurrence: US)
  Receive Date: 20120401
  Receipt Date: 20150403
  Transmission Date: 20150821
  Serious: Yes (Life-Threatening, Hospitalization, Congenital Anomaly, Other)
  Sender: FDA-Public Use
  Company Number: US-ELI_LILLY_AND_COMPANY-US201203008569

PATIENT
  Age: 3 Month

DRUGS (1)
  1. PROZAC [Suspect]
     Active Substance: FLUOXETINE HYDROCHLORIDE
     Indication: DEPRESSION
     Dosage: UNK, UNKNOWN
     Route: 064

REACTIONS (7)
  - Congenital tricuspid valve atresia [Unknown]
  - Ventricular septal defect [Unknown]
  - Cerebrovascular accident [Unknown]
  - Foetal exposure during pregnancy [Recovered/Resolved]
  - Thrombosis [Unknown]
  - Congenital tricuspid valve stenosis [Unknown]
  - Atrial septal defect [None]

NARRATIVE: CASE EVENT DATE: 201103
